FAERS Safety Report 5918662-6 (Version None)
Quarter: 2008Q4

REPORT INFORMATION
  Report Type: 
  Country: None (occurrence: None)
  Receive Date: 20081015
  Receipt Date: 20080515
  Transmission Date: 20090506
  Serious: No
  Sender: FDA-Public Use
  Company Number: US-ASTRAZENECA-2008UW10100

PATIENT
  Age: 72 Year
  Sex: Male
  Weight: 102.1 kg

DRUGS (3)
  1. SYMBICORT [Suspect]
     Indication: CHRONIC OBSTRUCTIVE PULMONARY DISEASE
     Dosage: 160/4.5 MCG (2 PUFFS BID)
     Route: 055
     Dates: start: 20080401
  2. ALBUTEROL [Concomitant]
  3. SPIRIVA [Concomitant]

REACTIONS (1)
  - ALOPECIA [None]
